FAERS Safety Report 10619129 (Version 2)
Quarter: 2015Q1

REPORT INFORMATION
  Report Type: Spontaneous
  Country: DE (occurrence: DE)
  Receive Date: 20141202
  Receipt Date: 20150223
  Transmission Date: 20150720
  Serious: Yes (Hospitalization, Other)
  Sender: FDA-Public Use
  Company Number: DE-SA-2014SA163372

PATIENT
  Age: 79 Year
  Sex: Male
  Weight: 80 kg

DRUGS (13)
  1. MARCUMAR [Concomitant]
     Active Substance: PHENPROCOUMON
     Indication: ATRIAL FIBRILLATION
     Route: 048
  2. MULTAQ [Suspect]
     Active Substance: DRONEDARONE
     Indication: CORONARY ARTERY DISEASE
     Route: 048
     Dates: start: 20100916, end: 20140919
  3. SIMVASTATIN. [Concomitant]
     Active Substance: SIMVASTATIN
  4. INSPRA [Concomitant]
     Active Substance: EPLERENONE
  5. ALLOPURINOL. [Concomitant]
     Active Substance: ALLOPURINOL
  6. SPIRIVA [Concomitant]
     Active Substance: TIOTROPIUM BROMIDE MONOHYDRATE
     Indication: BRONCHITIS
     Route: 055
  7. DELIX [Concomitant]
     Active Substance: RAMIPRIL
     Indication: HYPERTENSION
     Route: 048
  8. DELIX [Concomitant]
     Active Substance: RAMIPRIL
     Indication: MYOCARDIAL INFARCTION
     Route: 048
  9. MULTAQ [Suspect]
     Active Substance: DRONEDARONE
     Indication: CHRONIC OBSTRUCTIVE PULMONARY DISEASE
     Route: 048
     Dates: start: 20100916, end: 20140919
  10. AMLODIPINE [Concomitant]
     Active Substance: AMLODIPINE BESYLATE
     Indication: HYPERTENSION
     Route: 048
  11. RANEXA [Concomitant]
     Active Substance: RANOLAZINE
     Indication: MYOCARDIAL INFARCTION
     Route: 048
  12. MULTAQ [Suspect]
     Active Substance: DRONEDARONE
     Indication: ATRIAL FIBRILLATION
     Route: 048
     Dates: start: 20100916, end: 20140919
  13. AMLODIPINE [Concomitant]
     Active Substance: AMLODIPINE BESYLATE
     Indication: MYOCARDIAL INFARCTION
     Route: 048

REACTIONS (5)
  - Acute kidney injury [Recovered/Resolved]
  - Blood creatinine increased [Recovered/Resolved]
  - Nausea [Recovered/Resolved]
  - Plasmacytoma [Recovered/Resolved]
  - Oedema [Recovered/Resolved]

NARRATIVE: CASE EVENT DATE: 20140919
